FAERS Safety Report 5690942-1 (Version None)
Quarter: 2008Q2

REPORT INFORMATION
  Report Type: 
  Country: None (occurrence: None)
  Receive Date: 20080401
  Receipt Date: 20080324
  Transmission Date: 20081010
  Serious: Yes (Hospitalization, Other)
  Sender: FDA-Public Use
  Company Number: US-ELI_LILLY_AND_COMPANY-US200803005261

PATIENT
  Sex: Male

DRUGS (5)
  1. HUMULIN N [Suspect]
     Dates: start: 19930101
  2. PROTONIX [Concomitant]
  3. PLAVIX [Concomitant]
  4. COUMADIN [Concomitant]
  5. ULTRAM [Concomitant]
     Indication: GOUT

REACTIONS (23)
  - ABNORMAL BEHAVIOUR [None]
  - ARTHRALGIA [None]
  - ARTHROPATHY [None]
  - BLOOD GLUCOSE DECREASED [None]
  - BLOOD GLUCOSE INCREASED [None]
  - CALCINOSIS [None]
  - CATARACT [None]
  - CHEST PAIN [None]
  - CONTUSION [None]
  - DECREASED APPETITE [None]
  - DRUG INEFFECTIVE [None]
  - DRUG TOXICITY [None]
  - FALL [None]
  - FRACTURE MALUNION [None]
  - GOUT [None]
  - HOSPITALISATION [None]
  - LOWER LIMB FRACTURE [None]
  - OEDEMA PERIPHERAL [None]
  - PAIN IN EXTREMITY [None]
  - SKELETAL INJURY [None]
  - SKIN DISCOLOURATION [None]
  - SKIN LACERATION [None]
  - WEIGHT DECREASED [None]
